FAERS Safety Report 18458871 (Version 1)
Quarter: 2020Q4

REPORT INFORMATION
  Report Type: Spontaneous
  Country: CA (occurrence: CA)
  Receive Date: 20201103
  Receipt Date: 20201103
  Transmission Date: 20210114
  Serious: Yes (Hospitalization, Other)
  Sender: FDA-Public Use
  Company Number: CA-BAUSCH-BL-2020-031596

PATIENT
  Age: 48 Year
  Sex: Male

DRUGS (11)
  1. METRONIDAZOLE. [Suspect]
     Active Substance: METRONIDAZOLE
     Indication: PRODUCT USED FOR UNKNOWN INDICATION
     Dosage: DURATION: 31 (UNKNOWN)
     Route: 065
  2. PREDNISONE. [Suspect]
     Active Substance: PREDNISONE
     Indication: PRODUCT USED FOR UNKNOWN INDICATION
     Route: 065
  3. INFLIXIMAB [Concomitant]
     Active Substance: INFLIXIMAB
     Dosage: .
     Route: 042
  4. IMODIUM [Concomitant]
     Active Substance: LOPERAMIDE HYDROCHLORIDE
     Indication: PRODUCT USED FOR UNKNOWN INDICATION
  5. IMURAN [Concomitant]
     Active Substance: AZATHIOPRINE
     Indication: PRODUCT USED FOR UNKNOWN INDICATION
  6. CIPROFLOXACIN. [Suspect]
     Active Substance: CIPROFLOXACIN
     Indication: PRODUCT USED FOR UNKNOWN INDICATION
     Dosage: DURATION: 31 (UNKNOWN)
     Route: 065
  7. INFLIXIMAB [Concomitant]
     Active Substance: INFLIXIMAB
     Indication: COLITIS ULCERATIVE
     Dosage: .
  8. INFLIXIMAB [Concomitant]
     Active Substance: INFLIXIMAB
     Dosage: .
  9. INFLIXIMAB [Concomitant]
     Active Substance: INFLIXIMAB
     Dosage: .
  10. INFLIXIMAB [Concomitant]
     Active Substance: INFLIXIMAB
     Dosage: .
  11. INFLIXIMAB [Concomitant]
     Active Substance: INFLIXIMAB
     Dosage: .

REACTIONS (3)
  - Laboratory test abnormal [Unknown]
  - Rectal haemorrhage [Unknown]
  - Pouchitis [Unknown]
